FAERS Safety Report 16312429 (Version 2)
Quarter: 2020Q2

REPORT INFORMATION
  Report Type: Spontaneous
  Country: US (occurrence: US)
  Receive Date: 20190515
  Receipt Date: 20200519
  Transmission Date: 20200713
  Serious: No
  Sender: FDA-Public Use
  Company Number: US-SUN PHARMACEUTICAL INDUSTRIES LTD-2019R1-207911

PATIENT
  Age: 14 Year
  Sex: Male

DRUGS (5)
  1. MELATONIN [Suspect]
     Active Substance: MELATONIN
     Indication: EMANUEL SYNDROME
     Dosage: UNK
     Route: 065
  2. OXCARBAZEPINE. [Suspect]
     Active Substance: OXCARBAZEPINE
     Indication: EMANUEL SYNDROME
     Dosage: UNK
     Route: 065
  3. GUANFACINE. [Suspect]
     Active Substance: GUANFACINE
     Indication: EMANUEL SYNDROME
     Dosage: UNK
     Route: 065
  4. OMEPRAZOLE. [Suspect]
     Active Substance: OMEPRAZOLE
     Indication: EMANUEL SYNDROME
     Dosage: UNK
     Route: 065
  5. RISPERIDONE. [Suspect]
     Active Substance: RISPERIDONE
     Indication: EMANUEL SYNDROME
     Dosage: UNK
     Route: 065

REACTIONS (1)
  - Adverse event [Unknown]
